FAERS Safety Report 8615844-X (Version None)
Quarter: 2012Q3

REPORT INFORMATION
  Report Type: 
  Country: None (occurrence: None)
  Receive Date: 20120823
  Receipt Date: 20120810
  Transmission Date: 20120928
  Serious: Yes (Hospitalization, Other)
  Sender: FDA-Public Use
  Company Number: FR-GENZYME-CAMP-1002379

PATIENT
  Sex: Male
  Weight: 79 kg

DRUGS (7)
  1. FOLIC ACID [Concomitant]
     Indication: PROPHYLAXIS
     Dosage: 10 MG/DAY,
     Route: 048
     Dates: start: 20080715
  2. FLUDARA [Suspect]
     Indication: CHRONIC LYMPHOCYTIC LEUKAEMIA
     Dosage: 80 MG/M2, ON FIRST 3 DAYS OF EACH CYCLE (TOTAL 6 CYCLES)
     Route: 048
     Dates: start: 20080715, end: 20081203
  3. CAMPATH [Suspect]
     Indication: CHRONIC LYMPHOCYTIC LEUKAEMIA
     Dosage: 30 MG/M2, ON FIRST 3 DAYS OF EACH CYCLE (TOTAL 6 CYCLES)
     Route: 058
     Dates: start: 20080715, end: 20081203
  4. BACTRIM [Concomitant]
     Indication: ANTIFUNGAL PROPHYLAXIS
     Dosage: 1 DF, TIW
     Route: 048
     Dates: start: 20080715
  5. VFEND [Concomitant]
     Indication: ASPERGILLOSIS
     Dosage: 400 MG/DAY, UNK
     Route: 048
     Dates: start: 20081222
  6. CYCLOPHOSPHAMIDE [Suspect]
     Indication: CHRONIC LYMPHOCYTIC LEUKAEMIA
     Dosage: 500 MG/M2, ON FIRST 3 DAYS OF EACH CYCLE (TOTAL 6 CYCLES)
     Route: 048
     Dates: start: 20080715, end: 20081203
  7. VALGANCICLOVIR [Concomitant]
     Indication: ANTIVIRAL PROPHYLAXIS
     Dosage: 450 MG/DAY,
     Route: 048
     Dates: start: 20081223

REACTIONS (6)
  - CYSTITIS HAEMORRHAGIC [None]
  - INFECTION [None]
  - PHLEBITIS [None]
  - ADENOVIRUS INFECTION [None]
  - HUMAN POLYOMAVIRUS INFECTION [None]
  - HYDRONEPHROSIS [None]
